FAERS Safety Report 9326834 (Version 2)
Quarter: 2013Q4

REPORT INFORMATION
  Report Type: Spontaneous
  Country: DE (occurrence: None)
  Receive Date: 20130522
  Receipt Date: 20131017
  Transmission Date: 20140711
  Serious: Yes (Hospitalization)
  Sender: FDA-Public Use
  Company Number: 2013036110

PATIENT
  Age: 71 Year
  Sex: Male

DRUGS (11)
  1. PRIVIGEN (IMMUNE GLOBULIN INTRAVENOUS (HUMAN) 10% LIQUID) [Suspect]
     Indication: MONOCLONAL GAMMOPATHY
     Route: 042
     Dates: start: 20130312, end: 20130312
  2. METHOTREXAT [Concomitant]
  3. FOLSAN (FOLIC ACID) [Concomitant]
  4. ANTIHYPERTENSIVES (ANTIHYPERTENSIVES) [Concomitant]
  5. RAMIPRIL (RAMIPRIL) [Concomitant]
  6. ASS (ACETYLSALICYLIC ACID) [Concomitant]
  7. METFORMIN (METFORMIN) [Concomitant]
  8. OMEPRAZOL (OMEPRAZOLE) [Concomitant]
  9. VITAMIN D3 (COLECALCIFEROL) [Concomitant]
  10. SPIRIVA (TIOTROPIUM BROMIDE) [Concomitant]
  11. SYMBICORT [Concomitant]

REACTIONS (2)
  - Chronic obstructive pulmonary disease [None]
  - Moraxella infection [None]
